FAERS Safety Report 14032939 (Version 1)
Quarter: 2017Q4

REPORT INFORMATION
  Report Type: Spontaneous
  Country: GB (occurrence: GB)
  Receive Date: 20171002
  Receipt Date: 20171002
  Transmission Date: 20180321
  Serious: Yes (Other)
  Sender: FDA-Public Use
  Company Number: GB-IMPAX LABORATORIES, INC-2017-IPXL-02787

PATIENT
  Age: 52 Year
  Sex: Male

DRUGS (6)
  1. FELODIPINE. [Suspect]
     Active Substance: FELODIPINE
     Indication: BLOOD PRESSURE FLUCTUATION
     Dosage: 30 MG, DAILY
     Route: 065
  2. CLONIDINE HYDROCHLORIDE. [Suspect]
     Active Substance: CLONIDINE HYDROCHLORIDE
     Indication: BLOOD PRESSURE FLUCTUATION
     Dosage: UNK
     Route: 061
  3. BUTRANS [Suspect]
     Active Substance: BUPRENORPHINE
     Indication: BLOOD PRESSURE FLUCTUATION
     Dosage: 17.5 ?G, EVERY HOUR
     Route: 061
  4. TERAZOSIN [Suspect]
     Active Substance: TERAZOSIN\TERAZOSIN HYDROCHLORIDE
     Indication: BLOOD PRESSURE FLUCTUATION
     Dosage: 16 MG, DAILY
     Route: 065
  5. DOXAZOSIN [Suspect]
     Active Substance: DOXAZOSIN\DOXAZOSIN MESYLATE
     Indication: BLOOD PRESSURE FLUCTUATION
     Dosage: 8 MG, DAILY
     Route: 065
  6. BISOPROLOL [Suspect]
     Active Substance: BISOPROLOL
     Indication: BLOOD PRESSURE FLUCTUATION
     Dosage: 20 MG, DAILY
     Route: 065

REACTIONS (4)
  - Loss of consciousness [Recovering/Resolving]
  - Hypotension [Recovering/Resolving]
  - Drug ineffective [Unknown]
  - Epistaxis [Recovering/Resolving]
